FAERS Safety Report 14332328 (Version 1)
Quarter: 2017Q4

REPORT INFORMATION
  Report Type: Spontaneous
  Country: US (occurrence: US)
  Receive Date: 20171228
  Receipt Date: 20171228
  Transmission Date: 20180321
  Serious: Yes (Other)
  Sender: FDA-Public Use
  Company Number: US-GLAXOSMITHKLINE-US2017GSK198262

PATIENT
  Sex: Female

DRUGS (1)
  1. LAMICTAL [Suspect]
     Active Substance: LAMOTRIGINE
     Dosage: 200 MG, BID

REACTIONS (8)
  - Automatism [Unknown]
  - Seizure [Unknown]
  - Dysarthria [Unknown]
  - Abnormal behaviour [Unknown]
  - Aura [Unknown]
  - Paraesthesia [Unknown]
  - Fall [Unknown]
  - Staring [Unknown]

NARRATIVE: CASE EVENT DATE: 20110914
